FAERS Safety Report 4309786-8 (Version None)
Quarter: 2004Q1

REPORT INFORMATION
  Report Type: 
  Country: None (occurrence: None)
  Receive Date: 20040301
  Receipt Date: 20040217
  Transmission Date: 20041129
  Serious: Yes (Life-Threatening)
  Sender: FDA-Public Use
  Company Number: JP-JNJFOC-20040200931

PATIENT
  Age: 56 Year
  Sex: Female
  Weight: 61 kg

DRUGS (23)
  1. REMICADE [Suspect]
     Indication: RHEUMATOID ARTHRITIS
     Dosage: 3 MG/KG, 1 IN 1 AS NECESSARY, INTRAVENOUS DRIP
     Route: 041
     Dates: start: 20031110, end: 20031110
  2. REMICADE [Suspect]
     Indication: RHEUMATOID ARTHRITIS
     Dosage: 3 MG/KG, 1 IN 1 AS NECESSARY, INTRAVENOUS DRIP
     Route: 041
     Dates: start: 20031125, end: 20031125
  3. REMICADE [Suspect]
     Indication: RHEUMATOID ARTHRITIS
     Dosage: 3 MG/KG, 1 IN 1 AS NECESSARY, INTRAVENOUS DRIP
     Route: 041
     Dates: start: 20031224, end: 20031224
  4. RHEUMATREX [Suspect]
     Indication: RHEUMATOID ARTHRITIS
     Dosage: SEE IMAGE
     Route: 048
     Dates: start: 20030806, end: 20030820
  5. RHEUMATREX [Suspect]
     Indication: RHEUMATOID ARTHRITIS
     Dosage: SEE IMAGE
     Route: 048
     Dates: start: 20030827, end: 20030910
  6. RHEUMATREX [Suspect]
     Indication: RHEUMATOID ARTHRITIS
     Dosage: SEE IMAGE
     Route: 048
     Dates: start: 20030917, end: 20031008
  7. RHEUMATREX [Suspect]
     Indication: RHEUMATOID ARTHRITIS
     Dosage: SEE IMAGE
     Route: 048
     Dates: start: 20031015, end: 20031015
  8. RHEUMATREX [Suspect]
     Indication: RHEUMATOID ARTHRITIS
     Dosage: SEE IMAGE
     Route: 048
     Dates: start: 20031016, end: 20040128
  9. RHEUMATREX [Suspect]
     Indication: RHEUMATOID ARTHRITIS
     Dosage: SEE IMAGE
     Route: 048
     Dates: start: 20040129, end: 20040129
  10. RHEUMATREX [Suspect]
     Indication: RHEUMATOID ARTHRITIS
     Dosage: SEE IMAGE
     Route: 048
     Dates: start: 20030723
  11. RHEUMATREX [Suspect]
     Indication: RHEUMATOID ARTHRITIS
     Dosage: SEE IMAGE
     Route: 048
     Dates: start: 20030730
  12. ISONIAZID [Concomitant]
  13. PREDNISOLONE [Concomitant]
  14. VOLTAREN [Concomitant]
  15. VOLTAREN SR (DICLOFENAC SODIUM) CAPSULES [Concomitant]
  16. FOLIAMIN (FOLIC ACID) TABLETS [Concomitant]
  17. ADALAT [Concomitant]
  18. SELBEX (TEPRENONE) CAPSULES [Concomitant]
  19. ALFAROL (ALFACALCIDOL) CAPSULES [Concomitant]
  20. GLACKAY (ALL OTHER THERAPEUTIC PRODUCTS) CAPSULES [Concomitant]
  21. OMEPRAZON (OMEPRAZOLE) TABLETS [Concomitant]
  22. STRONG BOSTERIZAN (ALL OTHER THERAPEUTIC PRODUCTS) CREAM [Concomitant]
  23. ISODINE (POVIDONE-IODINE) SOLUTION [Concomitant]

REACTIONS (3)
  - PNEUMOCYSTIS CARINII PNEUMONIA [None]
  - PNEUMONIA VIRAL [None]
  - PNEUMONITIS [None]
